FAERS Safety Report 13569513 (Version 1)
Quarter: 2017Q2

REPORT INFORMATION
  Report Type: Spontaneous
  Country: US (occurrence: US)
  Receive Date: 20170522
  Receipt Date: 20170522
  Transmission Date: 20170830
  Serious: Yes (Other)
  Sender: FDA-Public Use
  Company Number: US-ELI_LILLY_AND_COMPANY-US201705002685

PATIENT
  Age: 63 Year
  Sex: Female

DRUGS (4)
  1. ALIMTA [Suspect]
     Active Substance: PEMETREXED DISODIUM
     Indication: NON-SMALL CELL LUNG CANCER
     Dosage: UNK UNK, UNKNOWN
     Route: 065
     Dates: start: 20150213
  2. CARBOPLATIN. [Concomitant]
     Active Substance: CARBOPLATIN
     Indication: NON-SMALL CELL LUNG CANCER
     Dosage: UNK UNK, UNKNOWN
     Dates: start: 20150213
  3. CYRAMZA [Suspect]
     Active Substance: RAMUCIRUMAB
     Indication: NON-SMALL CELL LUNG CANCER
     Dosage: UNK UNK, UNKNOWN
     Route: 065
     Dates: start: 201602
  4. NIVOLUMAB [Concomitant]
     Active Substance: NIVOLUMAB
     Indication: PRODUCT USED FOR UNKNOWN INDICATION
     Dosage: UNK
     Dates: start: 201511

REACTIONS (26)
  - Insomnia [Unknown]
  - Abdominal distension [Unknown]
  - Anxiety [Unknown]
  - Depression [Unknown]
  - Paraesthesia [Unknown]
  - Nausea [Unknown]
  - Abdominal pain [Unknown]
  - Disturbance in attention [Unknown]
  - Vision blurred [Unknown]
  - Decreased appetite [Unknown]
  - Diarrhoea [Unknown]
  - Deafness [Unknown]
  - Cough [Unknown]
  - Hypoaesthesia [Unknown]
  - Muscular weakness [Unknown]
  - Off label use [Unknown]
  - Oedema [Unknown]
  - Weight abnormal [Unknown]
  - Hypercalcaemia [Unknown]
  - Dyspepsia [Unknown]
  - Fatigue [Unknown]
  - Dyspnoea [Unknown]
  - Dyspepsia [Unknown]
  - Constipation [Unknown]
  - Myalgia [Unknown]
  - Oral candidiasis [Unknown]

NARRATIVE: CASE EVENT DATE: 201502
